FAERS Safety Report 24530890 (Version 1)
Quarter: 2024Q4

REPORT INFORMATION
  Report Type: Report from Study
  Country: US (occurrence: US)
  Receive Date: 20241021
  Receipt Date: 20241021
  Transmission Date: 20250114
  Serious: Yes (Other)
  Sender: ABBVIE
  Company Number: US-ABBVIE-5970315

PATIENT
  Age: 77 Year
  Sex: Female

DRUGS (1)
  1. SYNTHROID [Suspect]
     Active Substance: LEVOTHYROXINE SODIUM
     Indication: Product used for unknown indication
     Route: 048

REACTIONS (12)
  - Cerebral haemorrhage [Unknown]
  - Eye contusion [Unknown]
  - Chest pain [Unknown]
  - Throat irritation [Unknown]
  - Pain [Unknown]
  - Arthralgia [Unknown]
  - Gait disturbance [Unknown]
  - Dizziness [Unknown]
  - Unevaluable event [Unknown]
  - Drug ineffective [Unknown]
  - Fall [Unknown]
  - Depression [Unknown]

NARRATIVE: CASE EVENT DATE: 20240917
